FAERS Safety Report 8830387 (Version 1)
Quarter: 2012Q4

REPORT INFORMATION
  Report Type: Spontaneous
  Country: US (occurrence: None)
  Receive Date: 20121004
  Receipt Date: 20121004
  Transmission Date: 20130627
  Serious: Yes (Disabling, Other)
  Sender: FDA-Public Use
  Company Number: US-1194341

PATIENT

DRUGS (11)
  1. NEVANAC [Suspect]
     Dosage: 0.1 % TID, 3 days before cataract surgery as well as on the day of surgery Ophthalmic, (0.1 %, QD, postoperative for 21 days ophthalmic)
     Route: 047
  2. NEVANAC [Suspect]
     Route: 047
  3. VIGAMOX [Suspect]
     Dosage: 0.5 % TID, PEROPERATIVE TID 3 DAYS PRIOR TO SURGERY OPHTHALMIC
     Route: 047
  4. VIGAMOX [Suspect]
     Dosage: 0.5 % TID, PEROPERATIVE TID 3 DAYS PRIOR TO SURGERY OPHTHALMIC
     Route: 047
  5. VIGAMOX [Suspect]
     Dosage: 0.5 % TID, PEROPERATIVE TID 3 DAYS PRIOR TO SURGERY OPHTHALMIC
     Route: 047
  6. VIGAMOX [Suspect]
     Dosage: 0.5 % TID, Intraoperatively TID for 1 week Ophthalmic)
     Route: 047
  7. VIGAMOX [Suspect]
     Dosage: 0.5 % TID, Intraoperatively TID for 1 week Ophthalmic)
     Route: 047
  8. VIGAMOX [Suspect]
     Dosage: 0.5 % TID, Intraoperatively TID for 1 week Ophthalmic)
     Route: 047
  9. VIGAMOX [Suspect]
     Dosage: 1 DF QD, intraoperatively Intraocular
     Route: 031
  10. VIGAMOX [Suspect]
     Dosage: 1 DF QD, intraoperatively Intraocular
     Route: 031
  11. VIGAMOX [Suspect]
     Dosage: 1 DF QD, intraoperatively Intraocular
     Route: 031

REACTIONS (5)
  - Anterior chamber flare [None]
  - Anterior chamber cell [None]
  - Visual acuity reduced [None]
  - Eye pain [None]
  - Off label use [None]
